FAERS Safety Report 22595130 (Version 2)
Quarter: 2024Q1

REPORT INFORMATION
  Report Type: Spontaneous
  Country: FR (occurrence: FR)
  Receive Date: 20230613
  Receipt Date: 20240104
  Transmission Date: 20240410
  Serious: Yes (Hospitalization)
  Sender: FDA-Public Use
  Company Number: FR-AFSSAPS-RN2023000315

PATIENT
  Age: 16 Year
  Sex: Female
  Weight: 105 kg

DRUGS (12)
  1. ACETAMINOPHEN [Suspect]
     Active Substance: ACETAMINOPHEN
     Indication: Pyrexia
     Dosage: UNK
     Route: 048
     Dates: start: 20230302, end: 20230308
  2. AMIKACIN [Suspect]
     Active Substance: AMIKACIN
     Indication: Febrile bone marrow aplasia
     Dosage: UNK
     Route: 040
     Dates: start: 20230303, end: 20230305
  3. AMBISOME [Suspect]
     Active Substance: AMPHOTERICIN B
     Indication: Infection prophylaxis
     Dosage: UNK
     Route: 040
     Dates: start: 20230208, end: 20230306
  4. TEICOPLANIN [Suspect]
     Active Substance: TEICOPLANIN
     Indication: Febrile bone marrow aplasia
     Dosage: UNK
     Route: 065
     Dates: start: 20230224, end: 20230305
  5. BACTRIM [Suspect]
     Active Substance: SULFAMETHOXAZOLE\TRIMETHOPRIM
     Indication: Prophylaxis
     Dosage: UNK
     Route: 065
     Dates: start: 20230208
  6. FUNGIZONE [Suspect]
     Active Substance: AMPHOTERICIN B
     Indication: Antifungal prophylaxis
     Dosage: UNK
     Route: 048
     Dates: start: 20230220
  7. ONDANSETRON [Suspect]
     Active Substance: ONDANSETRON
     Indication: Prophylaxis of nausea and vomiting
     Dosage: UNK
     Route: 065
     Dates: start: 20230209
  8. DESOGESTREL [Suspect]
     Active Substance: DESOGESTREL
     Indication: Contraception
     Dosage: UNK
     Route: 048
     Dates: start: 20230213
  9. CYTARABINE [Suspect]
     Active Substance: CYTARABINE
     Indication: Acute myeloid leukaemia
     Dosage: UNK
     Route: 065
     Dates: start: 20230209, end: 20230218
  10. PIPERACILLIN SODIUM\TAZOBACTAM SODIUM [Suspect]
     Active Substance: PIPERACILLIN SODIUM\TAZOBACTAM SODIUM
     Indication: Febrile bone marrow aplasia
     Dosage: UNK
     Route: 040
     Dates: start: 20230206
  11. CILASTATIN SODIUM\IMIPENEM [Suspect]
     Active Substance: CILASTATIN SODIUM\IMIPENEM
     Indication: Febrile bone marrow aplasia
     Dosage: UNK
     Route: 040
     Dates: start: 20230303, end: 20230305
  12. LOVENOX [Suspect]
     Active Substance: ENOXAPARIN SODIUM
     Indication: Thrombosis prophylaxis
     Dosage: UNK
     Route: 058
     Dates: start: 20230220

REACTIONS (1)
  - Rash maculo-papular [Recovering/Resolving]

NARRATIVE: CASE EVENT DATE: 20230305
